FAERS Safety Report 22245613 (Version 1)
Quarter: 2023Q2

REPORT INFORMATION
  Report Type: Spontaneous
  Country: CA (occurrence: CA)
  Receive Date: 20230424
  Receipt Date: 20230424
  Transmission Date: 20230721
  Serious: Yes (Hospitalization)
  Sender: FDA-Public Use
  Company Number: None

PATIENT
  Age: 63 Year
  Sex: Female

DRUGS (6)
  1. METHOTREXATE [Suspect]
     Active Substance: METHOTREXATE
     Indication: Rheumatoid arthritis
     Route: 058
  2. LEFLUNOMIDE [Suspect]
     Active Substance: LEFLUNOMIDE
     Indication: Rheumatoid arthritis
     Route: 048
  3. AMIODARONE [Concomitant]
     Active Substance: AMIODARONE
  4. CYCLOPHOSPHAMIDE [Concomitant]
     Active Substance: CYCLOPHOSPHAMIDE
  5. HYDROXYCHLOROQUINE SULFATE [Concomitant]
     Active Substance: HYDROXYCHLOROQUINE SULFATE
  6. NITROFURANTOIN [Concomitant]
     Active Substance: NITROFURANTOIN

REACTIONS (7)
  - Chills [Unknown]
  - Cough [Unknown]
  - Dyspnoea [Unknown]
  - Lung consolidation [Unknown]
  - Pneumonitis [Unknown]
  - Productive cough [Unknown]
  - Pyrexia [Unknown]
